FAERS Safety Report 13265307 (Version 1)
Quarter: 2017Q1

REPORT INFORMATION
  Report Type: Spontaneous
  Country: FR (occurrence: FR)
  Receive Date: 20170223
  Receipt Date: 20170223
  Transmission Date: 20170428
  Serious: Yes (Other)
  Sender: FDA-Public Use
  Company Number: FR-FRESENIUS KABI-FK201701426

PATIENT
  Age: 73 Year
  Sex: Female

DRUGS (6)
  1. LEVOFOLINATE SODIUM [Concomitant]
     Active Substance: LEVOLEUCOVORIN DISODIUM
     Indication: COLON CANCER
     Route: 042
     Dates: start: 20161128, end: 20161226
  2. SOLU-MEDROL [Concomitant]
     Active Substance: METHYLPREDNISOLONE SODIUM SUCCINATE
     Indication: COLON CANCER
     Route: 041
     Dates: start: 20161128, end: 20161226
  3. FLUOROURACILE ACCORD [Suspect]
     Active Substance: FLUOROURACIL
     Route: 041
     Dates: start: 20161128, end: 20161226
  4. OXALIPLATIN 5MG/ML CONCENTRATE FOR SOLUTION FOR INFUSION [Suspect]
     Active Substance: OXALIPLATIN
     Indication: COLON CANCER
     Route: 042
     Dates: start: 20161128, end: 20161226
  5. FLUOROURACILE ACCORD [Suspect]
     Active Substance: FLUOROURACIL
     Indication: COLON CANCER
     Route: 040
     Dates: start: 20161128, end: 20161226
  6. EMEND [Concomitant]
     Active Substance: APREPITANT
     Indication: VOMITING
     Route: 048
     Dates: start: 20161128, end: 20170123

REACTIONS (1)
  - Hepatitis [Recovering/Resolving]

NARRATIVE: CASE EVENT DATE: 20170116
